FAERS Safety Report 5609258-4 (Version None)
Quarter: 2008Q1

REPORT INFORMATION
  Report Type: 
  Country: None (occurrence: None)
  Receive Date: 20080129
  Receipt Date: 20080129
  Transmission Date: 20080703
  Serious: No
  Sender: FDA-Public Use
  Company Number: None

PATIENT
  Age: 76 Year
  Sex: Male
  Weight: 71.6683 kg

DRUGS (1)
  1. VYTORIN [Suspect]
     Dosage: 20MG  1 DAILY
     Dates: start: 20070901, end: 20071110

REACTIONS (2)
  - FATIGUE [None]
  - PAIN IN EXTREMITY [None]
